FAERS Safety Report 20783450 (Version 2)
Quarter: 2022Q2

REPORT INFORMATION
  Report Type: Report from Study
  Country: NL (occurrence: NL)
  Receive Date: 20220504
  Receipt Date: 20220523
  Transmission Date: 20220720
  Serious: Yes (Death, Other)
  Sender: FDA-Public Use
  Company Number: NL-NOVARTISPH-NVSC2022NL100673

PATIENT
  Sex: Male

DRUGS (18)
  1. OCTREOTIDE ACETATE [Suspect]
     Active Substance: OCTREOTIDE ACETATE
     Indication: Acromegaly
     Dosage: 30 MG, Q4W (30 MG/2 ML)
     Route: 030
  2. OCTREOTIDE ACETATE [Suspect]
     Active Substance: OCTREOTIDE ACETATE
     Dosage: 30 MG, Q4W (ONCE EVERY 4 WEEKS)
     Route: 058
     Dates: start: 20141124
  3. OCTREOTIDE ACETATE [Suspect]
     Active Substance: OCTREOTIDE ACETATE
  4. HALOPERIDOL [Concomitant]
     Active Substance: HALOPERIDOL
     Indication: Product used for unknown indication
     Dosage: 1 MG (1 X PER DAY 0.5 PIECE)
     Route: 048
  5. COSMETICS [Concomitant]
     Active Substance: COSMETICS
     Indication: Product used for unknown indication
     Dosage: UNK (IF NECESSARY ACCORDING TO AGREEMENT DOCTOR)
     Route: 003
  6. GLICLAZIDE ^GENERICS^ [Concomitant]
     Indication: Product used for unknown indication
     Dosage: 30 MG (1 X PER DAY 1 PIECE)
     Route: 048
  7. METFORMIN [Concomitant]
     Active Substance: METFORMIN HYDROCHLORIDE
     Indication: Product used for unknown indication
     Dosage: 850 MG (2 X A DAY 1 PIECE)
     Route: 048
  8. PANTOPRAZOLE [Concomitant]
     Active Substance: PANTOPRAZOLE
     Indication: Product used for unknown indication
     Dosage: 40 MG (1 X PER DAY 1 PIECE)
     Route: 048
  9. SOTALOL [Concomitant]
     Active Substance: SOTALOL
     Indication: Product used for unknown indication
     Dosage: 40 MG (2 X A DAY 1 PIECE)
     Route: 048
  10. SIMVASTATIN [Concomitant]
     Active Substance: SIMVASTATIN
     Indication: Product used for unknown indication
     Dosage: 20 MG (1 X PER DAY 1 PIECE)
     Route: 048
  11. HYDROCORTISONE [Concomitant]
     Active Substance: HYDROCORTISONE
     Indication: Product used for unknown indication
     Dosage: 20 MG (3 X PER DAY (1.5; 1; 0.5 PIECE))
     Route: 048
  12. HYDROCORTISONE [Concomitant]
     Active Substance: HYDROCORTISONE
     Dosage: 2.5 MG (4 X PER DAY (4; 2; 4; 2 PIECE) ADDITIONAL IF NECESSARY)
     Route: 048
  13. PEGVISOMANT [Concomitant]
     Active Substance: PEGVISOMANT
     Indication: Product used for unknown indication
     Dosage: 20 MG (1 X PER DAY )
     Route: 051
  14. LEVOTHYROXINE SODIUM [Concomitant]
     Active Substance: LEVOTHYROXINE SODIUM
     Indication: Product used for unknown indication
     Dosage: 25 MICROGRAM PER GRAM (1 X PER DAY 1 PIECE IN COMBINATION WITH EUTHYROX 100MCG)
     Route: 065
  15. LEVOTHYROXINE SODIUM [Concomitant]
     Active Substance: LEVOTHYROXINE SODIUM
     Dosage: 100 MICROGRAM PER 100 GRAM (1 X PER DAY 1 PIECE IN COMBINATION WITH EUTHYROX 100MCG)
     Route: 065
  16. EDOXABAN [Concomitant]
     Active Substance: EDOXABAN
     Indication: Product used for unknown indication
     Dosage: 30 MG (1 X PER DAY 1 PIECE)
     Route: 048
  17. EDOXABAN [Concomitant]
     Active Substance: EDOXABAN
     Dosage: 60 MG (1 X PER DAY 1 PIECE)
     Route: 048
  18. HUMAN IMMUNOGLOBULIN G [Concomitant]
     Active Substance: HUMAN IMMUNOGLOBULIN G
     Indication: Product used for unknown indication
     Dosage: 100 UNK (1 X A DAY 45 GRAM DURING 5 DAYS)
     Route: 065
     Dates: end: 20220426

REACTIONS (3)
  - Respiratory failure [Fatal]
  - Nervous system disorder [Fatal]
  - Terminal state [Unknown]
